FAERS Safety Report 12804435 (Version 3)
Quarter: 2016Q4

REPORT INFORMATION
  Report Type: Spontaneous
  Country: US (occurrence: US)
  Receive Date: 20161003
  Receipt Date: 20161115
  Transmission Date: 20170207
  Serious: Yes (Other)
  Sender: FDA-Public Use
  Company Number: US-ACTELION-A-US2016-142983

PATIENT
  Age: 49 Year
  Sex: Male

DRUGS (3)
  1. ZETIA [Concomitant]
     Active Substance: EZETIMIBE
     Dosage: UNK
     Dates: start: 20160805
  2. LIPITOR [Concomitant]
     Active Substance: ATORVASTATIN CALCIUM
     Dosage: UNK
     Dates: end: 20160805
  3. TRACLEER [Suspect]
     Active Substance: BOSENTAN
     Indication: PULMONARY ARTERIAL HYPERTENSION
     Dosage: 125 MG, UNK
     Route: 048
     Dates: start: 2010, end: 20160805

REACTIONS (6)
  - Aspartate aminotransferase increased [Recovered/Resolved]
  - Pain [Recovering/Resolving]
  - Liver disorder [Recovered/Resolved]
  - Arthropod bite [Recovering/Resolving]
  - Pyrexia [Recovering/Resolving]
  - Alanine aminotransferase increased [Recovered/Resolved]

NARRATIVE: CASE EVENT DATE: 20160723
